FAERS Safety Report 22332570 (Version 1)
Quarter: 2023Q2

REPORT INFORMATION
  Report Type: Spontaneous
  Country: JP (occurrence: JP)
  Receive Date: 20230517
  Receipt Date: 20230517
  Transmission Date: 20230721
  Serious: No
  Sender: FDA-Public Use
  Company Number: JP-ORPHANEU-2018004848

PATIENT

DRUGS (2)
  1. CYSTADANE [Suspect]
     Active Substance: BETAINE
     Indication: Homocystinuria
     Dosage: 8 G/DAY BID
     Dates: start: 20150612
  2. CYSTADANE [Suspect]
     Active Substance: BETAINE
     Indication: Cystathionine beta-synthase deficiency

REACTIONS (1)
  - Calculus urinary [Recovered/Resolved]

NARRATIVE: CASE EVENT DATE: 20170701
